FAERS Safety Report 8794208 (Version 5)
Quarter: 2012Q4

REPORT INFORMATION
  Report Type: 
  Country: JP (occurrence: JP)
  Receive Date: 20120918
  Receipt Date: 20121116
  Transmission Date: 20130627
  Serious: Yes (Hospitalization, Other)
  Sender: FDA-Public Use
  Company Number: JP-AMGEN-JPNSP2012058200

PATIENT
  Age: 72 Year
  Sex: Female
  Weight: 42 kg

DRUGS (12)
  1. ENBREL [Suspect]
     Indication: RHEUMATOID ARTHRITIS
     Dosage: 25 mg, every two weeks
     Route: 058
     Dates: start: 20100510, end: 2011
  2. ENBREL [Suspect]
     Dosage: UNK
     Route: 058
     Dates: start: 201201, end: 20120822
  3. LYRICA [Suspect]
     Dosage: 75 mg, 1x/day
     Route: 048
     Dates: end: 20120902
  4. GASTER [Suspect]
     Dosage: 10 mg, 2x/day
     Route: 048
     Dates: end: 20120902
  5. FEBURIC [Concomitant]
     Dosage: 40 mg, 1x/day
     Route: 048
  6. FERROMIA /00023516/ [Concomitant]
     Dosage: 50 mg, 1x/day
     Route: 048
  7. YODEL [Concomitant]
     Dosage: 160 mg, 2x/day
     Route: 048
  8. RHYTHMY [Concomitant]
     Dosage: 2 mg, as needed
     Route: 048
  9. FRANDOL [Concomitant]
     Dosage: 40 mg, 1x/day
     Route: 061
  10. PREDONINE                          /00016201/ [Concomitant]
     Dosage: 5 mg, 1x/day
     Route: 048
  11. OPALMON [Concomitant]
     Dosage: 5 ug, 3x/day
     Route: 048
     Dates: end: 20120902
  12. CALONAL [Concomitant]
     Dosage: 400 mg, as needed
     Route: 048

REACTIONS (6)
  - Renal failure acute [Recovered/Resolved]
  - Inflammation [Recovered/Resolved]
  - Biliary tract infection [Unknown]
  - Ileus [Unknown]
  - Sinusitis [Unknown]
  - Pneumonia [Unknown]
